FAERS Safety Report 6570494-4 (Version None)
Quarter: 2010Q1

REPORT INFORMATION
  Report Type: 
  Country: None (occurrence: None)
  Receive Date: 20100204
  Receipt Date: 20091007
  Transmission Date: 20100710
  Serious: No
  Sender: FDA-Public Use
  Company Number: A0811278A

PATIENT

DRUGS (1)
  1. ARIXTRA [Suspect]
     Indication: DEEP VEIN THROMBOSIS

REACTIONS (1)
  - LABORATORY TEST ABNORMAL [None]
